FAERS Safety Report 24746041 (Version 2)
Quarter: 2025Q1

REPORT INFORMATION
  Report Type: Spontaneous
  Country: GB (occurrence: GB)
  Receive Date: 20241218
  Receipt Date: 20250113
  Transmission Date: 20250409
  Serious: Yes (Other)
  Sender: SANOFI AVENTIS
  Company Number: GB-BIOVITRUM-2024-GB-014201

PATIENT
  Sex: Male

DRUGS (2)
  1. EFMOROCTOCOG ALFA [Suspect]
     Active Substance: EFMOROCTOCOG ALFA
     Indication: Product used for unknown indication
     Route: 065
     Dates: start: 20171201
  2. EFMOROCTOCOG ALFA [Suspect]
     Active Substance: EFMOROCTOCOG ALFA
     Indication: Product used for unknown indication
     Route: 065
     Dates: start: 20171201

REACTIONS (1)
  - Haemarthrosis [Unknown]
